FAERS Safety Report 6254104-1 (Version None)
Quarter: 2009Q2

REPORT INFORMATION
  Report Type: 
  Country: None (occurrence: None)
  Receive Date: 20090630
  Receipt Date: 20090630
  Transmission Date: 20091009
  Serious: Yes (Hospitalization)
  Sender: FDA-Public Use
  Company Number: None

PATIENT
  Sex: Male
  Weight: 73.5 kg

DRUGS (2)
  1. PEMETREXED LAST DOSE 910 MG [Suspect]
     Indication: PROSTATE CANCER
     Dosage: 500 MG/M^2 Q 21 D IV
     Route: 042
     Dates: start: 20090202, end: 20090608
  2. OXALIPLATIN [Suspect]
     Indication: PROSTATE CANCER
     Dosage: 120 MG/M^2 Q 21 D IV
     Route: 042
     Dates: start: 20090202, end: 20090608

REACTIONS (6)
  - DISEASE PROGRESSION [None]
  - DIZZINESS [None]
  - FATIGUE [None]
  - MUSCULAR WEAKNESS [None]
  - PRESYNCOPE [None]
  - SYNCOPE [None]
